FAERS Safety Report 23985093 (Version 1)
Quarter: 2024Q2

REPORT INFORMATION
  Report Type: Spontaneous
  Country: US (occurrence: US)
  Receive Date: 20240618
  Receipt Date: 20240618
  Transmission Date: 20240716
  Serious: No
  Sender: FDA-Public Use
  Company Number: US-IMP-2024000301

PATIENT
  Age: 79 Year
  Sex: Female

DRUGS (2)
  1. VEVYE [Suspect]
     Active Substance: CYCLOSPORINE
     Indication: Product used for unknown indication
     Route: 065
  2. VEVYE [Suspect]
     Active Substance: CYCLOSPORINE
     Indication: Product used for unknown indication
     Route: 065
     Dates: start: 20240427, end: 20240430

REACTIONS (5)
  - Visual impairment [Unknown]
  - Eye irritation [Unknown]
  - Dry eye [Unknown]
  - Ocular hyperaemia [Unknown]
  - Eye irritation [Unknown]

NARRATIVE: CASE EVENT DATE: 20240430
